FAERS Safety Report 7272189-0 (Version None)
Quarter: 2011Q1

REPORT INFORMATION
  Report Type: 
  Country: None (occurrence: None)
  Receive Date: 20110203
  Receipt Date: 20110120
  Transmission Date: 20110831
  Serious: Yes (Other)
  Sender: FDA-Public Use
  Company Number: PHHY2011DE04752

PATIENT
  Age: 73 Year
  Sex: Male

DRUGS (1)
  1. ZOMETA [Suspect]
     Indication: PROSTATE CANCER
     Dosage: 1 DF, EVERY FOUR MONTH
     Route: 042
     Dates: start: 20050101

REACTIONS (3)
  - OSTEOMYELITIS [None]
  - JAW DISORDER [None]
  - ALVEOLAR OSTEITIS [None]
